FAERS Safety Report 11243127 (Version 1)
Quarter: 2015Q3

REPORT INFORMATION
  Report Type: Spontaneous
  Country: CA (occurrence: CA)
  Receive Date: 20150707
  Receipt Date: 20150707
  Transmission Date: 20151125
  Serious: Yes (Hospitalization)
  Sender: FDA-Public Use
  Company Number: CA-BIOGENIDEC-2015BI091162

PATIENT
  Age: 47 Year
  Sex: Female

DRUGS (1)
  1. TYSABRI [Suspect]
     Active Substance: NATALIZUMAB
     Indication: RELAPSING-REMITTING MULTIPLE SCLEROSIS
     Route: 042
     Dates: start: 20111127

REACTIONS (3)
  - Multiple sclerosis relapse [Not Recovered/Not Resolved]
  - Urinary tract infection [Recovered/Resolved]
  - Diplegia [Not Recovered/Not Resolved]

NARRATIVE: CASE EVENT DATE: 20150609
